FAERS Safety Report 16731159 (Version 2)
Quarter: 2019Q4

REPORT INFORMATION
  Report Type: Spontaneous
  Country: JP (occurrence: JP)
  Receive Date: 20190822
  Receipt Date: 20191030
  Transmission Date: 20200122
  Serious: Yes (Other)
  Sender: FDA-Public Use
  Company Number: JP-GLAXOSMITHKLINE-JP2019JPN118656

PATIENT
  Age: 27 Year
  Sex: Female
  Weight: 45 kg

DRUGS (9)
  1. LAMICTAL [Suspect]
     Active Substance: LAMOTRIGINE
     Dosage: 25 MG, QOD
     Route: 048
     Dates: start: 20190604, end: 20190606
  2. ALEVIATIN [Concomitant]
     Active Substance: PHENYTOIN SODIUM
     Indication: EPILEPSY
     Dosage: 100 MG, BID MORNING AND EVENING
     Route: 048
     Dates: start: 201109
  3. PERAMPANEL HYDRATE [Concomitant]
     Indication: EPILEPSY
     Dosage: 8 MG, UNK
     Route: 048
     Dates: start: 201901, end: 20190313
  4. DIAPP [Concomitant]
     Active Substance: DIAZEPAM
     Dosage: 10 MG, QD BEFORE SLEEP
     Route: 054
  5. E KEPPRA TABLETS [Concomitant]
     Indication: EPILEPSY
     Dosage: 1500 MG, BID, MORNING AND EVENING
     Route: 048
     Dates: start: 201112
  6. DEPAKENE-R TABLET [Concomitant]
     Active Substance: VALPROATE SODIUM
     Indication: EPILEPSY
     Dosage: 400 MG, TID,AFTER EVERY MEAL
     Route: 048
     Dates: start: 201109
  7. MEDICON (DEXTROMETHORPHAN HYDROBROMIDE HYDRATE) [Concomitant]
     Dosage: 15 MG, TID
  8. LAMICTAL [Suspect]
     Active Substance: LAMOTRIGINE
     Indication: EPILEPSY
     Dosage: 25 MG, QOD,EVERY OTHER EVENING
     Route: 048
     Dates: start: 20190507, end: 20190521
  9. LAMICTAL [Suspect]
     Active Substance: LAMOTRIGINE
     Indication: SEIZURE PROPHYLAXIS
     Dosage: 25 MG, QD
     Route: 048
     Dates: start: 20190522, end: 20190603

REACTIONS (9)
  - Malaise [Recovered/Resolved]
  - Pyrexia [Recovering/Resolving]
  - Skin disorder [Recovering/Resolving]
  - Stomatitis [Recovering/Resolving]
  - Fluid intake reduced [Recovering/Resolving]
  - Drug ineffective [Unknown]
  - Oropharyngeal pain [Recovering/Resolving]
  - Pharyngeal erythema [Recovering/Resolving]
  - Decreased appetite [Recovering/Resolving]

NARRATIVE: CASE EVENT DATE: 20190529
